FAERS Safety Report 5740330-4 (Version None)
Quarter: 2008Q2

REPORT INFORMATION
  Report Type: 
  Country: None (occurrence: None)
  Receive Date: 20080513
  Receipt Date: 20080506
  Transmission Date: 20081010
  Serious: Yes (Death, Hospitalization, Other)
  Sender: FDA-Public Use
  Company Number: 2008SP000618

PATIENT
  Age: 38 Year
  Sex: Male

DRUGS (6)
  1. TEMODAL [Suspect]
     Indication: METASTASES TO CENTRAL NERVOUS SYSTEM
     Dosage: 170 MG;QD;  125 MG; QD
     Dates: start: 20071127, end: 20071219
  2. TEMODAL [Suspect]
     Indication: METASTATIC MALIGNANT MELANOMA
     Dosage: 170 MG;QD;  125 MG; QD
     Dates: start: 20071127, end: 20071219
  3. TEMODAL [Suspect]
     Indication: METASTASES TO CENTRAL NERVOUS SYSTEM
     Dosage: 170 MG;QD;  125 MG; QD
     Dates: start: 20071231, end: 20080101
  4. TEMODAL [Suspect]
     Indication: METASTATIC MALIGNANT MELANOMA
     Dosage: 170 MG;QD;  125 MG; QD
     Dates: start: 20071231, end: 20080101
  5. DEXAMETHASONE TAB [Concomitant]
  6. DILANTIN [Concomitant]

REACTIONS (5)
  - MALIGNANT NEOPLASM PROGRESSION [None]
  - METASTASES TO RECTUM [None]
  - METASTATIC MALIGNANT MELANOMA [None]
  - NEUTROPENIA [None]
  - PNEUMONIA [None]
